FAERS Safety Report 11168182 (Version 1)
Quarter: 2015Q2

REPORT INFORMATION
  Report Type: Spontaneous
  Country: US (occurrence: None)
  Receive Date: 20150604
  Receipt Date: 20150604
  Transmission Date: 20150821
  Serious: No
  Sender: FDA-Public Use
  Company Number: None

PATIENT
  Age: 36 Year
  Sex: Female
  Weight: 54.43 kg

DRUGS (5)
  1. CLONAZEPAM. [Concomitant]
     Active Substance: CLONAZEPAM
  2. ZOLOFT [Concomitant]
     Active Substance: SERTRALINE HYDROCHLORIDE
  3. OMEGA 3 SUPPLEMENT [Concomitant]
  4. ADDERALL [Concomitant]
     Active Substance: AMPHETAMINE ASPARTATE\AMPHETAMINE SULFATE\DEXTROAMPHETAMINE SACCHARATE\DEXTROAMPHETAMINE SULFATE
  5. MIRENA [Suspect]
     Active Substance: LEVONORGESTREL

REACTIONS (12)
  - Migraine [None]
  - Depression [None]
  - Ovarian cyst [None]
  - Mood swings [None]
  - Vertigo [None]
  - Headache [None]
  - Fatigue [None]
  - Anxiety [None]
  - Abdominal distension [None]
  - Weight increased [None]
  - Tremor [None]
  - Nausea [None]

NARRATIVE: CASE EVENT DATE: 20150201
